FAERS Safety Report 22098979 (Version 1)
Quarter: 2023Q1

REPORT INFORMATION
  Report Type: Spontaneous
  Country: US (occurrence: None)
  Receive Date: 20230315
  Receipt Date: 20230315
  Transmission Date: 20230418
  Serious: Yes (Other)
  Sender: FDA-Public Use
  Company Number: None

PATIENT
  Age: 64 Year
  Sex: Female
  Weight: 50.4 kg

DRUGS (2)
  1. PROLIA [Suspect]
     Active Substance: DENOSUMAB
     Indication: Osteoporosis
     Dosage: OTHER FREQUENCY : EVERY 6 MONTHS;?
     Route: 058
     Dates: start: 20220901, end: 20230303
  2. PROLIA [Concomitant]
     Active Substance: DENOSUMAB
     Dates: start: 20220901, end: 20230303

REACTIONS (11)
  - Asthenia [None]
  - Asthenia [None]
  - Arthralgia [None]
  - Pain in extremity [None]
  - Peripheral swelling [None]
  - Pruritus [None]
  - Rash papular [None]
  - Hypersomnia [None]
  - Pain in extremity [None]
  - Rash erythematous [None]
  - Rash [None]

NARRATIVE: CASE EVENT DATE: 20230303
